FAERS Safety Report 8594091-4 (Version None)
Quarter: 2012Q3

REPORT INFORMATION
  Report Type: 
  Country: None (occurrence: None)
  Receive Date: 20120814
  Receipt Date: 20120807
  Transmission Date: 20120928
  Serious: Yes (Hospitalization)
  Sender: FDA-Public Use
  Company Number: IE-BAXTER-2012BAX014069

PATIENT
  Sex: Male
  Weight: 102 kg

DRUGS (3)
  1. SODIUM CHLORIDE [Suspect]
     Indication: OSTEOMYELITIS
     Route: 042
     Dates: start: 20120803
  2. MEROPENEM [Suspect]
     Indication: OSTEOMYELITIS
     Route: 042
     Dates: start: 20120803
  3. RAMIPRIL [Concomitant]

REACTIONS (5)
  - HYPOTENSION [None]
  - HEART RATE INCREASED [None]
  - PYREXIA [None]
  - FATIGUE [None]
  - ASTHENIA [None]
